FAERS Safety Report 6822082-X (Version None)
Quarter: 2010Q3

REPORT INFORMATION
  Report Type: 
  Country: None (occurrence: None)
  Receive Date: 20100708
  Receipt Date: 20100628
  Transmission Date: 20110219
  Serious: Yes (Other)
  Sender: FDA-Public Use
  Company Number: US-JNJFOC-20100700107

PATIENT
  Sex: Female
  Weight: 61.24 kg

DRUGS (5)
  1. TOPAMAX [Suspect]
     Indication: HEADACHE
     Route: 048
  2. TOPAMAX [Suspect]
     Route: 048
  3. FLUCONAZOLE [Concomitant]
     Indication: HEADACHE
     Dosage: THREE TIMES PER DAY AS NEEDED
     Route: 065
  4. MORPHINE [Concomitant]
     Indication: PAIN IN EXTREMITY
     Dosage: THREE TIMES PER DAY AS NEEDED
     Route: 048
  5. MORPHINE [Concomitant]
     Indication: BACK PAIN
     Dosage: THREE TIMES PER DAY AS NEEDED
     Route: 048

REACTIONS (6)
  - ABORTION SPONTANEOUS [None]
  - DRUG EXPOSURE DURING PREGNANCY [None]
  - DRUG INEFFECTIVE [None]
  - EYE DISORDER [None]
  - PANIC ATTACK [None]
  - WEIGHT INCREASED [None]
